FAERS Safety Report 7746957-2 (Version None)
Quarter: 2011Q3

REPORT INFORMATION
  Report Type: 
  Country: None (occurrence: None)
  Receive Date: 20110913
  Receipt Date: 20110901
  Transmission Date: 20111222
  Serious: Yes (Other)
  Sender: FDA-Public Use
  Company Number: PHHY2011GR79507

PATIENT
  Age: 60 Year
  Sex: Male

DRUGS (1)
  1. IMATINIB MESYLATE [Suspect]
     Dosage: 200 MG, UNK
     Route: 048

REACTIONS (4)
  - MARROW HYPERPLASIA [None]
  - BACK PAIN [None]
  - GENE MUTATION IDENTIFICATION TEST POSITIVE [None]
  - MASS [None]
